FAERS Safety Report 7221194-9 (Version None)
Quarter: 2011Q1

REPORT INFORMATION
  Report Type: 
  Country: None (occurrence: None)
  Receive Date: 20110112
  Receipt Date: 20110103
  Transmission Date: 20110831
  Serious: Yes (Life-Threatening)
  Sender: FDA-Public Use
  Company Number: DE-ELI_LILLY_AND_COMPANY-DE201011003987

PATIENT
  Sex: Female

DRUGS (1)
  1. FORTEO [Suspect]
     Indication: OSTEOPOROSIS
     Dosage: UNK, UNKNOWN
     Route: 058
     Dates: start: 20101101, end: 20101106

REACTIONS (8)
  - DIARRHOEA [None]
  - CHILLS [None]
  - VERTIGO [None]
  - HYPERHIDROSIS [None]
  - VOMITING [None]
  - URINARY INCONTINENCE [None]
  - APATHY [None]
  - NAUSEA [None]
